FAERS Safety Report 16981733 (Version 2)
Quarter: 2019Q4

REPORT INFORMATION
  Report Type: Spontaneous
  Country: BR (occurrence: BR)
  Receive Date: 20191101
  Receipt Date: 20191206
  Transmission Date: 20200122
  Serious: Yes (Death, Hospitalization, Other)
  Sender: FDA-Public Use
  Company Number: BR-AMGEN-BRASP2017112530

PATIENT
  Age: 72 Year
  Sex: Female
  Weight: 72 kg

DRUGS (2)
  1. ENBREL [Suspect]
     Active Substance: ETANERCEPT
     Indication: RHEUMATOID ARTHRITIS
     Dosage: UNK
     Route: 065
     Dates: start: 201706
  2. ENBREL [Suspect]
     Active Substance: ETANERCEPT
     Dosage: UNK, WEEKLY
     Route: 065
     Dates: start: 2018, end: 2018

REACTIONS (4)
  - Cerebrovascular accident [Fatal]
  - Arthralgia [Unknown]
  - Coma [Fatal]
  - Gait disturbance [Unknown]

NARRATIVE: CASE EVENT DATE: 2018
